FAERS Safety Report 7073329-9 (Version None)
Quarter: 2010Q4

REPORT INFORMATION
  Report Type: 
  Country: None (occurrence: None)
  Receive Date: 20101029
  Receipt Date: 20100628
  Transmission Date: 20110411
  Serious: Yes (Hospitalization)
  Sender: FDA-Public Use
  Company Number: A0862741A

PATIENT
  Age: 72 Year
  Sex: Male

DRUGS (11)
  1. ADVAIR DISKUS 100/50 [Suspect]
     Indication: CHRONIC OBSTRUCTIVE PULMONARY DISEASE
     Dosage: 1PUFF TWICE PER DAY
     Route: 055
     Dates: start: 20070101
  2. SPIRIVA [Concomitant]
  3. METOCLOPRAMIDE HCL [Concomitant]
  4. OMEPRAZOLE [Concomitant]
  5. FLOMAX [Concomitant]
  6. PLAVIX [Concomitant]
  7. PRAVASTATIN SODIUM [Concomitant]
  8. BENZONATATE [Concomitant]
  9. COMBIVENT [Concomitant]
  10. IPRATROPIUM BROMIDE [Concomitant]
  11. ALBUTEROL SULFATE [Concomitant]

REACTIONS (1)
  - PNEUMONIA [None]
